FAERS Safety Report 8201391-6 (Version None)
Quarter: 2012Q1

REPORT INFORMATION
  Report Type: 
  Country: None (occurrence: None)
  Receive Date: 20120305
  Receipt Date: 20120223
  Transmission Date: 20120608
  Serious: Yes (Hospitalization, Other)
  Sender: FDA-Public Use
  Company Number: 2011027679

PATIENT
  Age: 47 Year
  Sex: Female
  Weight: 61.2356 kg

DRUGS (22)
  1. HIZENTRA [Suspect]
  2. FENTANYL [Concomitant]
  3. ACYCLOVIR [Concomitant]
  4. HIZENTRA [Suspect]
  5. HIZENTRA [Suspect]
  6. ACETAMINOPHEN [Concomitant]
  7. HIZENTRA [Suspect]
     Indication: IMMUNODEFICIENCY COMMON VARIABLE
     Dosage: SEE IMAGE
     Dates: start: 20101101
  8. HIZENTRA [Suspect]
     Indication: IMMUNODEFICIENCY COMMON VARIABLE
     Dosage: SEE IMAGE
     Dates: start: 20101101
  9. HIZENTRA [Suspect]
     Indication: IMMUNODEFICIENCY COMMON VARIABLE
     Dosage: SEE IMAGE
     Dates: start: 20101101
  10. HIZENTRA [Suspect]
     Indication: IMMUNODEFICIENCY COMMON VARIABLE
     Dosage: SEE IMAGE
     Dates: start: 20120215, end: 20120215
  11. HIZENTRA [Suspect]
     Indication: IMMUNODEFICIENCY COMMON VARIABLE
     Dosage: SEE IMAGE
     Dates: start: 20101101
  12. HIZENTRA [Suspect]
     Indication: IMMUNODEFICIENCY COMMON VARIABLE
     Dosage: SEE IMAGE
     Dates: start: 20101101
  13. HIZENTRA [Suspect]
     Indication: IMMUNODEFICIENCY COMMON VARIABLE
     Dosage: SEE IMAGE
     Dates: start: 20120215, end: 20120215
  14. HIZENTRA [Suspect]
     Indication: IMMUNODEFICIENCY COMMON VARIABLE
     Dosage: SEE IMAGE
     Dates: start: 20101101
  15. LORAZEPAM [Concomitant]
  16. PREDNISONE TAB [Concomitant]
  17. ASPIRIN [Concomitant]
  18. MULTIVITAMIN (MULTIVITAMIN /00831701/) [Concomitant]
  19. HIZENTRA [Suspect]
  20. HIZENTRA [Suspect]
  21. HIZENTRA [Suspect]
  22. HIZENTRA [Suspect]

REACTIONS (4)
  - HEPATIC STEATOSIS [None]
  - NEOPLASM MALIGNANT [None]
  - SPINAL DISORDER [None]
  - RESPIRATORY TRACT INFECTION [None]
